FAERS Safety Report 8277421-2 (Version None)
Quarter: 2012Q2

REPORT INFORMATION
  Report Type: 
  Country: None (occurrence: None)
  Receive Date: 20120412
  Receipt Date: 20120405
  Transmission Date: 20120825
  Serious: Yes (Other)
  Sender: FDA-Public Use
  Company Number: US-PFIZER INC-2012080543

PATIENT
  Sex: Female

DRUGS (3)
  1. GEODON [Suspect]
     Dosage: UNK
  2. PROTONIX [Suspect]
     Dosage: UNK
  3. EFFEXOR XR [Suspect]
     Dosage: UNK

REACTIONS (3)
  - SUICIDAL IDEATION [None]
  - DRUG DEPENDENCE [None]
  - LOSS OF LIBIDO [None]
